FAERS Safety Report 12447880 (Version 4)
Quarter: 2017Q1

REPORT INFORMATION
  Report Type: Spontaneous
  Country: CH (occurrence: IT)
  Receive Date: 20160608
  Receipt Date: 20170213
  Transmission Date: 20170428
  Serious: Yes (Other)
  Sender: FDA-Public Use
  Company Number: CH-LPDUSPRD-20160471

PATIENT
  Age: 29 Year
  Sex: Female

DRUGS (1)
  1. FERINJECT [Suspect]
     Active Substance: FERRIC CARBOXYMALTOSE
     Dosage: 50 MG (1 IN 1 TOTAL)
     Route: 065
     Dates: start: 20160509, end: 20160509

REACTIONS (4)
  - Amaurosis [Unknown]
  - Tongue discolouration [Unknown]
  - Dysaesthesia [Unknown]
  - Oral dysaesthesia [Unknown]

NARRATIVE: CASE EVENT DATE: 20160509
